FAERS Safety Report 9135210 (Version 1)
Quarter: 2013Q1

REPORT INFORMATION
  Report Type: Spontaneous
  Country: US (occurrence: US)
  Receive Date: 20130304
  Receipt Date: 20130304
  Transmission Date: 20140127
  Serious: No
  Sender: FDA-Public Use
  Company Number: US-ALLERGAN-1215718US

PATIENT
  Age: 41 Year
  Sex: Female

DRUGS (1)
  1. TAZORAC [Suspect]
     Indication: ACNE
     Dosage: APPLY TO ENTIRE FACE AT BEDTIME
     Route: 061
     Dates: start: 201206, end: 201207

REACTIONS (2)
  - Seborrhoea [Unknown]
  - Acne cystic [Unknown]
